FAERS Safety Report 9005715 (Version 1)
Quarter: 2013Q1

REPORT INFORMATION
  Report Type: Spontaneous
  Country: US (occurrence: US)
  Receive Date: 20130109
  Receipt Date: 20130109
  Transmission Date: 20140127
  Serious: No
  Sender: FDA-Public Use
  Company Number: US-ABBOTT-12P-163-1005452-00

PATIENT
  Age: 63 Year
  Sex: Female

DRUGS (3)
  1. VICODIN 5/500 [Suspect]
     Indication: PAIN MANAGEMENT
     Dosage: 5/500 MG
     Dates: start: 200903
  2. VICODIN 5/500 [Suspect]
     Dates: start: 20121023, end: 20121105
  3. VICODIN ES [Suspect]
     Indication: PAIN MANAGEMENT
     Dosage: 7.5/300 MG
     Dates: start: 20121023, end: 20121105

REACTIONS (4)
  - Euphoric mood [Not Recovered/Not Resolved]
  - Lethargy [Not Recovered/Not Resolved]
  - Activities of daily living impaired [Not Recovered/Not Resolved]
  - Blood pressure increased [Not Recovered/Not Resolved]
